FAERS Safety Report 5113524-9 (Version None)
Quarter: 2006Q3

REPORT INFORMATION
  Report Type: 
  Country: None (occurrence: None)
  Receive Date: 20060920
  Receipt Date: 20060905
  Transmission Date: 20061208
  Serious: Yes (Hospitalization)
  Sender: FDA-Public Use
  Company Number: BE200609000679

PATIENT
  Age: 81 Year
  Sex: Female

DRUGS (1)
  1. ZYPREXA [Suspect]
     Dosage: ORAL
     Route: 048
     Dates: start: 20000101

REACTIONS (1)
  - ANAEMIA [None]
